FAERS Safety Report 4346751-9 (Version None)
Quarter: 2004Q1

REPORT INFORMATION
  Report Type: 
  Country: None (occurrence: None)
  Receive Date: 20040325
  Receipt Date: 20040128
  Transmission Date: 20041129
  Serious: No
  Sender: FDA-Public Use
  Company Number: USA030640087

PATIENT
  Age: 72 Year
  Sex: Female

DRUGS (2)
  1. FORTEO [Suspect]
     Indication: FRACTURE
     Dates: start: 20030311
  2. FORTEO [Suspect]
     Indication: OSTEOPOROSIS
     Dates: start: 20030311

REACTIONS (5)
  - CATARACT OPERATION [None]
  - CREPITATIONS [None]
  - MACULAR DEGENERATION [None]
  - MUSCLE CRAMP [None]
  - PAIN [None]
